FAERS Safety Report 8615924-9 (Version None)
Quarter: 2012Q3

REPORT INFORMATION
  Report Type: 
  Country: None (occurrence: None)
  Receive Date: 20120823
  Receipt Date: 20120821
  Transmission Date: 20120928
  Serious: Yes (Hospitalization)
  Sender: FDA-Public Use
  Company Number: US-GLAXOSMITHKLINE-A0990299A

PATIENT
  Age: 68 Year
  Sex: Male
  Weight: 74.5 kg

DRUGS (3)
  1. ARIXTRA [Suspect]
     Indication: VENOUS THROMBOSIS
  2. TAXOL [Suspect]
     Indication: NON-SMALL CELL LUNG CANCER
  3. CARBOPLATIN [Suspect]
     Indication: NON-SMALL CELL LUNG CANCER

REACTIONS (1)
  - LOBAR PNEUMONIA [None]
